FAERS Safety Report 5127486-1 (Version None)
Quarter: 2006Q4

REPORT INFORMATION
  Report Type: 
  Country: None (occurrence: None)
  Receive Date: 20061010
  Receipt Date: 20060925
  Transmission Date: 20070319
  Serious: Yes (Other)
  Sender: FDA-Public Use
  Company Number: 2006102868

PATIENT
  Age: 76 Year
  Sex: Female

DRUGS (7)
  1. ZYVOX [Suspect]
     Indication: ENTEROCOCCAL INFECTION
     Dosage: 1200 MG (600 MG, 2 IN 1D); INTRAVENOUS
     Route: 042
     Dates: start: 20060816, end: 20060821
  2. ZYVOX [Suspect]
     Indication: PNEUMONIA
     Dosage: 1200 MG (600 MG, 2 IN 1D); INTRAVENOUS
     Route: 042
     Dates: start: 20060816, end: 20060821
  3. MAXIPIME [Concomitant]
  4. MEROPEN (MEROPENEM) [Concomitant]
  5. VANCOMYCIN [Concomitant]
  6. ANTIBIOTICS [Concomitant]
  7. TARGOCID [Concomitant]

REACTIONS (3)
  - BLOOD BILIRUBIN INCREASED [None]
  - DEPRESSED LEVEL OF CONSCIOUSNESS [None]
  - PLATELET COUNT DECREASED [None]
